FAERS Safety Report 7527520-5 (Version None)
Quarter: 2011Q2

REPORT INFORMATION
  Report Type: 
  Country: None (occurrence: None)
  Receive Date: 20110527
  Receipt Date: 20110513
  Transmission Date: 20111010
  Serious: Yes (Hospitalization)
  Sender: FDA-Public Use
  Company Number: AUR-APL-2011-01697

PATIENT
  Age: 42 Year
  Sex: Male

DRUGS (6)
  1. ASPIRIN [Concomitant]
  2. RAMIPRIL [Suspect]
     Indication: ACUTE MYOCARDIAL INFARCTION
     Dosage: 5MG - BID - ORAL
     Route: 048
     Dates: start: 20110325, end: 20110418
  3. ACETAMINOPHEN [Suspect]
     Indication: PAIN
     Dosage: 500MG - BID - ORAL
     Route: 048
     Dates: start: 20110414, end: 20110417
  4. SIMVASTATIN [Suspect]
     Indication: ACUTE MYOCARDIAL INFARCTION
     Dosage: 40MG - DAILY - ORAL
     Route: 048
     Dates: start: 20110325, end: 20110415
  5. PLAVIX [Concomitant]
  6. METOPROLOL [Concomitant]

REACTIONS (5)
  - ACUTE HEPATIC FAILURE [None]
  - CHOLECYSTITIS CHRONIC [None]
  - LIVER INJURY [None]
  - CHOLELITHIASIS [None]
  - TOXICITY TO VARIOUS AGENTS [None]
